FAERS Safety Report 19870294 (Version 2)
Quarter: 2021Q4

REPORT INFORMATION
  Report Type: Spontaneous
  Country: US (occurrence: US)
  Receive Date: 20210922
  Receipt Date: 20211019
  Transmission Date: 20220304
  Serious: Yes (Other)
  Sender: FDA-Public Use
  Company Number: US-PFIZER INC-202100986267

PATIENT
  Age: 74 Year
  Sex: Female

DRUGS (21)
  1. IBRANCE [Suspect]
     Active Substance: PALBOCICLIB
     Dosage: 100 MG
     Dates: start: 20210701
  2. IBRANCE [Suspect]
     Active Substance: PALBOCICLIB
     Dosage: 100 MG
     Dates: start: 20210719
  3. IBRANCE [Suspect]
     Active Substance: PALBOCICLIB
     Dosage: 100 MG
     Dates: start: 20210728
  4. IBRANCE [Suspect]
     Active Substance: PALBOCICLIB
     Dosage: 100 MG
     Dates: start: 20210803
  5. CLARITIN [Concomitant]
     Active Substance: LORATADINE
     Indication: Pharyngeal paraesthesia
     Dosage: UNK
  6. CLARITIN [Concomitant]
     Active Substance: LORATADINE
     Indication: Cough
  7. GLYBURIDE [Concomitant]
     Active Substance: GLYBURIDE
     Indication: Hypertension
     Dosage: UNK
  8. GLYBURIDE [Concomitant]
     Active Substance: GLYBURIDE
     Indication: Type 2 diabetes mellitus
  9. GLYBURIDE [Concomitant]
     Active Substance: GLYBURIDE
     Indication: Dyslipidaemia
  10. METFORMIN [Concomitant]
     Active Substance: METFORMIN HYDROCHLORIDE
     Indication: Hypertension
     Dosage: UNK
  11. METFORMIN [Concomitant]
     Active Substance: METFORMIN HYDROCHLORIDE
     Indication: Type 2 diabetes mellitus
  12. METFORMIN [Concomitant]
     Active Substance: METFORMIN HYDROCHLORIDE
     Indication: Dyslipidaemia
  13. LOSARTAN [Concomitant]
     Active Substance: LOSARTAN
     Indication: Hypertension
     Dosage: UNK
  14. LOSARTAN [Concomitant]
     Active Substance: LOSARTAN
     Indication: Type 2 diabetes mellitus
  15. LOSARTAN [Concomitant]
     Active Substance: LOSARTAN
     Indication: Dyslipidaemia
  16. HYDROCHLOROTHIAZIDE [Concomitant]
     Active Substance: HYDROCHLOROTHIAZIDE
     Indication: Hypertension
     Dosage: UNK
  17. HYDROCHLOROTHIAZIDE [Concomitant]
     Active Substance: HYDROCHLOROTHIAZIDE
     Indication: Type 2 diabetes mellitus
  18. HYDROCHLOROTHIAZIDE [Concomitant]
     Active Substance: HYDROCHLOROTHIAZIDE
     Indication: Dyslipidaemia
  19. SIMVASTATIN [Concomitant]
     Active Substance: SIMVASTATIN
     Indication: Hypertension
     Dosage: UNK
  20. SIMVASTATIN [Concomitant]
     Active Substance: SIMVASTATIN
     Indication: Type 2 diabetes mellitus
  21. SIMVASTATIN [Concomitant]
     Active Substance: SIMVASTATIN
     Indication: Dyslipidaemia

REACTIONS (10)
  - Renal impairment [Recovered/Resolved]
  - Rash [Unknown]
  - Lacrimation increased [Unknown]
  - Drug hypersensitivity [Unknown]
  - Blood creatinine abnormal [Unknown]
  - Creatinine renal clearance abnormal [Unknown]
  - Urinary tract infection [Unknown]
  - Infection [Unknown]
  - Blood creatinine increased [Unknown]
  - Blood glucose fluctuation [Unknown]
